FAERS Safety Report 6780917-3 (Version None)
Quarter: 2010Q2

REPORT INFORMATION
  Report Type: 
  Country: None (occurrence: None)
  Receive Date: 20100621
  Receipt Date: 20100615
  Transmission Date: 20101027
  Serious: Yes (Other)
  Sender: FDA-Public Use
  Company Number: ES-ELI_LILLY_AND_COMPANY-ES200903001939

PATIENT
  Age: 30 Year
  Sex: Female

DRUGS (4)
  1. HUMALOG MIX 75/25 [Suspect]
     Indication: TYPE 1 DIABETES MELLITUS
     Dosage: UNK, UNKNOWN
     Route: 058
     Dates: start: 20090123, end: 20090123
  2. GLUCAGEN [Concomitant]
     Indication: HYPOGLYCAEMIA
     Dosage: 1 MG POWDER AND SOLVENT FOR INJECTABLE SOLUTION
     Route: 058
     Dates: start: 20090123
  3. LANTUS [Concomitant]
     Indication: DIABETES MELLITUS
     Route: 058
     Dates: start: 20090123
  4. PRODERMA [Concomitant]
     Dosage: 50 MG, UNKNOWN
     Route: 048
     Dates: start: 20090123

REACTIONS (2)
  - HYPOGLYCAEMIA [None]
  - MEDICATION ERROR [None]
